FAERS Safety Report 12951940 (Version 1)
Quarter: 2016Q4

REPORT INFORMATION
  Report Type: Report from Study
  Country: None (occurrence: US)
  Receive Date: 20161117
  Receipt Date: 20161117
  Transmission Date: 20170207
  Serious: Yes (Hospitalization)
  Sender: FDA-Public Use
  Company Number: US-ABBVIE-16K-163-1778759-00

PATIENT
  Sex: Female

DRUGS (5)
  1. HUMIRA [Suspect]
     Active Substance: ADALIMUMAB
     Indication: RHEUMATOID ARTHRITIS
     Route: 058
     Dates: start: 201411
  2. LEUCOVORIN. [Suspect]
     Active Substance: LEUCOVORIN
     Indication: PROPHYLAXIS
     Route: 065
  3. LEUCOVORIN. [Suspect]
     Active Substance: LEUCOVORIN
     Indication: ADVERSE DRUG REACTION
  4. METHOTREXATE. [Suspect]
     Active Substance: METHOTREXATE
     Indication: RHEUMATOID ARTHRITIS
     Route: 065
  5. PREDNISONE. [Concomitant]
     Active Substance: PREDNISONE
     Indication: RHEUMATOID ARTHRITIS

REACTIONS (12)
  - Laceration [Unknown]
  - Gait disturbance [Unknown]
  - Rheumatoid factor increased [Unknown]
  - Back pain [Not Recovered/Not Resolved]
  - Pain in extremity [Unknown]
  - Nausea [Not Recovered/Not Resolved]
  - Herpes zoster [Unknown]
  - Malaise [Unknown]
  - Alopecia [Unknown]
  - Grip strength decreased [Unknown]
  - Fall [Unknown]
  - Initial insomnia [Unknown]

NARRATIVE: CASE EVENT DATE: 2016
